FAERS Safety Report 5733161-2 (Version None)
Quarter: 2008Q2

REPORT INFORMATION
  Report Type: 
  Country: None (occurrence: None)
  Receive Date: 20080509
  Receipt Date: 20080506
  Transmission Date: 20081010
  Serious: Yes (Other)
  Sender: FDA-Public Use
  Company Number: BR-ASTRAZENECA-2008UW07485

PATIENT
  Age: 73 Year
  Sex: Female
  Weight: 90 kg

DRUGS (9)
  1. ARIMIDEX [Suspect]
     Indication: BREAST CANCER FEMALE
     Route: 048
     Dates: start: 20070301
  2. CORTISONE [Suspect]
  3. GLUCOFORMIN 850 [Concomitant]
     Indication: DIABETES MELLITUS
     Route: 048
  4. ATENOLOL [Concomitant]
     Indication: HYPERTENSION
     Route: 048
  5. EUTHYROX [Concomitant]
     Indication: HYPOTHYROIDISM
     Route: 048
  6. LAMITOR [Concomitant]
     Indication: DEPRESSION
     Route: 048
  7. MONOCORDIL 20MG [Concomitant]
     Indication: ARRHYTHMIA
     Route: 048
  8. TRIATEC 5MG [Concomitant]
     Indication: HYPERTENSION
     Route: 048
  9. AMARIL 2MG [Concomitant]
     Route: 048

REACTIONS (3)
  - HOT FLUSH [None]
  - PLATELET COUNT DECREASED [None]
  - SWELLING [None]
